FAERS Safety Report 25504585 (Version 1)
Quarter: 2025Q3

REPORT INFORMATION
  Report Type: Spontaneous
  Country: US (occurrence: None)
  Receive Date: 20250701
  Receipt Date: 20250701
  Transmission Date: 20251020
  Serious: Yes (Hospitalization)
  Sender: FDA-CTU
  Company Number: None

PATIENT
  Age: 39 Year
  Sex: Female
  Weight: 58.5 kg

DRUGS (1)
  1. LATISSE [Suspect]
     Active Substance: BIMATOPROST
     Indication: Madarosis
     Dates: start: 20250521, end: 20250614

REACTIONS (2)
  - Corneal abrasion [None]
  - Visual impairment [None]

NARRATIVE: CASE EVENT DATE: 20250615
